FAERS Safety Report 9395946 (Version 1)
Quarter: 2013Q3

REPORT INFORMATION
  Report Type: Report from Study
  Country: US (occurrence: US)
  Receive Date: 20130711
  Receipt Date: 20130711
  Transmission Date: 20140515
  Serious: Yes (Hospitalization)
  Sender: FDA-Public Use
  Company Number: US-ASTRAZENECA-2013SE50410

PATIENT
  Age: 73 Year
  Sex: Female
  Weight: 54.4 kg

DRUGS (7)
  1. NEXIUM [Suspect]
     Indication: DYSPEPSIA
     Route: 048
     Dates: start: 2009, end: 2010
  2. MYLANTA [Concomitant]
     Indication: DYSPEPSIA
     Dosage: 3 TABLESPOONS, BID
     Route: 048
  3. ALKA SELTZER [Concomitant]
     Indication: DYSPEPSIA
     Dosage: PRN
     Route: 048
  4. TUM [Concomitant]
     Indication: DYSPEPSIA
     Route: 048
  5. MULTI-VITAMIN [Concomitant]
     Route: 048
  6. VITAMIN D [Concomitant]
     Route: 048
  7. VITAMIN C [Concomitant]
     Route: 048

REACTIONS (2)
  - Hip fracture [Recovering/Resolving]
  - Fall [Unknown]
